FAERS Safety Report 11514990 (Version 3)
Quarter: 2015Q4

REPORT INFORMATION
  Report Type: Spontaneous
  Country: JP (occurrence: JP)
  Receive Date: 20150916
  Receipt Date: 20151207
  Transmission Date: 20160304
  Serious: Yes (Other)
  Sender: FDA-Public Use
  Company Number: JP-DSJP-DSJ-2015-128284

PATIENT

DRUGS (1)
  1. LIXIANA TABLETS [Suspect]
     Active Substance: EDOXABAN TOSILATE MONOHYDRATE
     Indication: DEEP VEIN THROMBOSIS
     Dosage: UNK
     Route: 065
     Dates: start: 20150317, end: 20150323

REACTIONS (5)
  - Abortion induced [Recovered/Resolved]
  - Exposure during pregnancy [Unknown]
  - Haemorrhagic diathesis [Recovered/Resolved]
  - Disseminated intravascular coagulation [Recovered/Resolved]
  - Myomectomy [Recovered/Resolved]

NARRATIVE: CASE EVENT DATE: 20150325
